FAERS Safety Report 8521344 (Version 32)
Quarter: 2021Q4

REPORT INFORMATION
  Report Type: Spontaneous
  Country: US (occurrence: US)
  Receive Date: 20120419
  Receipt Date: 20211108
  Transmission Date: 20220303
  Serious: Yes (Hospitalization, Other)
  Sender: FDA-Public Use
  Company Number: US-PFIZER INC-2009201742

PATIENT
  Age: 65 Year
  Sex: Female
  Weight: 57 kg

DRUGS (30)
  1. XALATAN [Suspect]
     Active Substance: LATANOPROST
     Indication: Glaucoma
     Dosage: 2 GTT, 1X/DAY (1 DROP IN EACH EYE ONCE A DAY)
     Route: 047
     Dates: start: 200401
  2. XALATAN [Suspect]
     Active Substance: LATANOPROST
     Dosage: 2 GTT, 1X/DAY (1 DROP IN EACH EYE ONCE A DAY)
     Route: 047
     Dates: start: 200401
  3. XALATAN [Suspect]
     Active Substance: LATANOPROST
     Dosage: UNK
     Route: 047
     Dates: start: 2008, end: 2011
  4. XALATAN [Suspect]
     Active Substance: LATANOPROST
     Dosage: 1X/DAY (IN THE EVENING)
     Route: 047
     Dates: start: 201111
  5. XALATAN [Suspect]
     Active Substance: LATANOPROST
     Dosage: 0.005 %, 1X/DAY, (ONE DROP IN EACH EYE ONCE IN THE EVENING)
     Route: 047
     Dates: start: 201111
  6. XALATAN [Suspect]
     Active Substance: LATANOPROST
     Dosage: 2 GTT, 1X/DAY [ONCE AT NIGHT, ONE DROP INTO BOTH EYES]
     Route: 047
  7. XALATAN [Suspect]
     Active Substance: LATANOPROST
     Dosage: UNK
     Route: 047
     Dates: end: 201710
  8. XALATAN [Suspect]
     Active Substance: LATANOPROST
     Dosage: UNK
     Route: 047
  9. XALATAN [Suspect]
     Active Substance: LATANOPROST
     Dosage: UNK
  10. XALATAN [Suspect]
     Active Substance: LATANOPROST
     Dosage: 2 GTT, 1X/DAY [IN THE EVENING]
     Route: 047
  11. XALATAN [Suspect]
     Active Substance: LATANOPROST
     Dosage: 2 GTT, 1X/DAY [IN THE EVENING]
  12. XALATAN [Suspect]
     Active Substance: LATANOPROST
     Dosage: UNK
  13. XALATAN [Suspect]
     Active Substance: LATANOPROST
     Dosage: UNK
  14. XALATAN [Suspect]
     Active Substance: LATANOPROST
     Dosage: UNK
  15. XALATAN [Suspect]
     Active Substance: LATANOPROST
     Dosage: UNK
  16. XALATAN [Suspect]
     Active Substance: LATANOPROST
     Dosage: UNK
  17. LATANOPROST [Suspect]
     Active Substance: LATANOPROST
     Indication: Glaucoma
     Dosage: UNK, DAILY
     Route: 047
     Dates: start: 201111, end: 2011
  18. TIMOLOL MALEATE [Suspect]
     Active Substance: TIMOLOL MALEATE
     Indication: Glaucoma
     Dosage: UNK
     Route: 047
     Dates: start: 2006
  19. TIMOLOL MALEATE [Suspect]
     Active Substance: TIMOLOL MALEATE
     Indication: Intraocular pressure increased
     Dosage: 1 DROP IN EACH EYE TWO TIMES A DAY
     Route: 047
     Dates: start: 2007, end: 200810
  20. TRUSOPT [Suspect]
     Active Substance: DORZOLAMIDE HYDROCHLORIDE
     Indication: Glaucoma
     Dosage: UNK
     Route: 047
     Dates: start: 2006, end: 2008
  21. SYNTHROID [Suspect]
     Active Substance: LEVOTHYROXINE SODIUM
     Indication: Thyroid disorder
     Dosage: UNK
     Dates: start: 2009
  22. SYNTHROID [Suspect]
     Active Substance: LEVOTHYROXINE SODIUM
     Indication: Hypothyroidism
     Dosage: 0.75 UG, DAILY
     Route: 048
     Dates: start: 201111, end: 201209
  23. LEVOTHYROXINE SODIUM [Concomitant]
     Active Substance: LEVOTHYROXINE SODIUM
     Indication: Thyroid disorder
     Dosage: 112 UG, 1X/DAY
     Route: 048
     Dates: start: 2012
  24. LEVOTHYROXINE SODIUM [Concomitant]
     Active Substance: LEVOTHYROXINE SODIUM
     Indication: Hypothyroidism
  25. AVAPRO [Concomitant]
     Active Substance: IRBESARTAN
     Indication: Hypertension
     Dosage: 150 MG, 1X/DAY
     Route: 048
     Dates: end: 2013
  26. LOSARTAN [Concomitant]
     Active Substance: LOSARTAN
     Indication: Hypertension
     Dosage: 100 MG, DAILY
     Route: 048
     Dates: start: 2014
  27. AMLODIPINE [Concomitant]
     Active Substance: AMLODIPINE BESYLATE
     Dosage: UNK
     Dates: start: 2014
  28. LEVOTHYROXINE [Concomitant]
     Active Substance: LEVOTHYROXINE
     Indication: Hypothyroidism
     Dosage: 50 UG, UNK
  29. LEVOTHYROXINE [Concomitant]
     Active Substance: LEVOTHYROXINE
     Indication: Thyroid disorder
     Dosage: 88 UG, 1X/DAY
  30. LEVOTHYROXINE [Concomitant]
     Active Substance: LEVOTHYROXINE
     Dosage: 100 UG, DAILY (100MCG 1 TABLET BY MOUTH DAILY)
     Route: 048

REACTIONS (44)
  - Chest discomfort [Not Recovered/Not Resolved]
  - Alopecia [Not Recovered/Not Resolved]
  - Growth of eyelashes [Recovered/Resolved]
  - Body height decreased [Not Recovered/Not Resolved]
  - Condition aggravated [Not Recovered/Not Resolved]
  - Hypersensitivity [Not Recovered/Not Resolved]
  - Dizziness [Not Recovered/Not Resolved]
  - Device failure [Not Recovered/Not Resolved]
  - Tooth infection [Not Recovered/Not Resolved]
  - Dyspnoea [Not Recovered/Not Resolved]
  - Eye inflammation [Not Recovered/Not Resolved]
  - Thyroid disorder [Recovered/Resolved]
  - Emphysema [Not Recovered/Not Resolved]
  - Post procedural infection [Unknown]
  - Corneal endothelial cell loss [Unknown]
  - Neuroendocrine tumour [Unknown]
  - Chronic obstructive pulmonary disease [Not Recovered/Not Resolved]
  - Inflammation [Unknown]
  - Vocal cord dysfunction [Not Recovered/Not Resolved]
  - Hyperthyroidism [Not Recovered/Not Resolved]
  - Blindness [Not Recovered/Not Resolved]
  - Paralysis [Recovered/Resolved]
  - Mental impairment [Not Recovered/Not Resolved]
  - Cataract [Not Recovered/Not Resolved]
  - Eye disorder [Unknown]
  - Drug ineffective [Unknown]
  - Glaucoma [Unknown]
  - Eyelid irritation [Not Recovered/Not Resolved]
  - Swelling of eyelid [Recovered/Resolved]
  - Hair disorder [Recovered/Resolved]
  - Tinnitus [Recovered/Resolved]
  - Reading disorder [Not Recovered/Not Resolved]
  - Influenza [Not Recovered/Not Resolved]
  - Pain [Recovered/Resolved]
  - Fear [Recovered/Resolved]
  - Dysgraphia [Recovered/Resolved]
  - Confusional state [Recovered/Resolved]
  - Gastroenteritis [Unknown]
  - Ear pain [Unknown]
  - Oropharyngeal pain [Unknown]
  - Arthritis [Recovered/Resolved]
  - Malaise [Unknown]
  - Weight decreased [Unknown]
  - Muscular weakness [Unknown]

NARRATIVE: CASE EVENT DATE: 20060101
